FAERS Safety Report 4786081-4 (Version None)
Quarter: 2005Q3

REPORT INFORMATION
  Report Type: 
  Country: None (occurrence: None)
  Receive Date: 20050930
  Receipt Date: 20050920
  Transmission Date: 20060218
  Serious: Yes (Life-Threatening, Hospitalization)
  Sender: FDA-Public Use
  Company Number: 2005AL003692

PATIENT
  Age: 63 Year
  Sex: Male

DRUGS (5)
  1. SERAX [Suspect]
     Dosage: PO
     Route: 048
     Dates: end: 20050629
  2. LARGACTIL {NULL} [Suspect]
     Dosage: PO
     Route: 048
     Dates: end: 20050629
  3. NOCTRAN 10 {NULL} [Suspect]
     Dosage: IV
     Route: 042
     Dates: start: 20050630, end: 20050702
  4. NOZINAN /00038602/ ({NULL}) [Suspect]
     Dosage: PO
     Route: 048
     Dates: start: 20050630, end: 20050702
  5. TRANXENE ({NULL}) [Suspect]
     Dosage: 50- MG;QD;PO
     Route: 048
     Dates: start: 20050630, end: 20050630

REACTIONS (7)
  - COMA [None]
  - CONDITION AGGRAVATED [None]
  - FALL [None]
  - INTRACRANIAL INJURY [None]
  - LOSS OF CONSCIOUSNESS [None]
  - RENAL FAILURE [None]
  - RESTLESSNESS [None]
